FAERS Safety Report 14013943 (Version 1)
Quarter: 2017Q3

REPORT INFORMATION
  Report Type: Spontaneous
  Country: US (occurrence: US)
  Receive Date: 20170926
  Receipt Date: 20170926
  Transmission Date: 20171128
  Serious: Yes (Other)
  Sender: FDA-Public Use
  Company Number: US-009507513-1709USA008936

PATIENT
  Sex: Female

DRUGS (1)
  1. NEXPLANON [Suspect]
     Active Substance: ETONOGESTREL
     Indication: CONTRACEPTION
     Dosage: SINGLE ONCE, FOR UP TO THREE YEARS
     Route: 059

REACTIONS (3)
  - Therapeutic response unexpected [Unknown]
  - Acne [Unknown]
  - Amenorrhoea [Unknown]
